FAERS Safety Report 6168285-1 (Version None)
Quarter: 2009Q2

REPORT INFORMATION
  Report Type: 
  Country: None (occurrence: None)
  Receive Date: 20090427
  Receipt Date: 20090416
  Transmission Date: 20091009
  Serious: Yes (Hospitalization)
  Sender: FDA-Public Use
  Company Number: FR-PFIZER INC-2009199801

PATIENT

DRUGS (6)
  1. SUTENT [Suspect]
     Indication: RENAL CANCER METASTATIC
     Dosage: UNK
  2. PARACETAMOL [Concomitant]
  3. SPASFON [Concomitant]
  4. PRIMPERAN [Concomitant]
  5. OMEPRAZOLE [Concomitant]
  6. AZANTAC [Concomitant]

REACTIONS (1)
  - OESOPHAGITIS ULCERATIVE [None]
